FAERS Safety Report 8902124 (Version 1)
Quarter: 2012Q4

REPORT INFORMATION
  Report Type: 
  Country: SE (occurrence: SE)
  Receive Date: 20121112
  Receipt Date: 20121112
  Transmission Date: 20130627
  Serious: Yes (Hospitalization)
  Sender: FDA-Public Use
  Company Number: SE-PFIZER INC-2012278059

PATIENT
  Age: 40 Year
  Sex: Female
  Weight: 92.5 kg

DRUGS (7)
  1. GENOTROPIN [Suspect]
     Dosage: 0.4 mg, 1x/day, 7 injections/week
     Route: 058
     Dates: start: 20021016
  2. ZOLOFT [Concomitant]
     Dosage: UNK
  3. DHEA [Concomitant]
     Indication: HYPOGONADISM
     Dosage: UNK
     Dates: start: 20090423
  4. ESTRADIOL [Concomitant]
     Indication: HYPOGONADISM
     Dosage: UNK
     Dates: start: 20090423
  5. HYDROCORTONE [Concomitant]
     Indication: ADRENAL INSUFFICIENCY
     Dosage: UNK
  6. MINRIN [Concomitant]
     Indication: DIABETES INSIPIDUS
     Dosage: UNK
  7. LEVOTHYROXINE [Concomitant]
     Indication: HYPOTHYROIDISM
     Dosage: UNK
     Dates: start: 20090423

REACTIONS (2)
  - Gastric disorder [Unknown]
  - Malaise [Unknown]
